FAERS Safety Report 10006814 (Version 1)
Quarter: 2014Q1

REPORT INFORMATION
  Report Type: Spontaneous
  Country: US (occurrence: US)
  Receive Date: 20140313
  Receipt Date: 20140313
  Transmission Date: 20141002
  Serious: No
  Sender: FDA-Public Use
  Company Number: US-GILEAD-2012-0065410

PATIENT
  Age: 54 Year
  Sex: Female

DRUGS (4)
  1. LETAIRIS [Suspect]
     Indication: PULMONARY ARTERIAL HYPERTENSION
     Dosage: 10 MG, QD
     Route: 048
     Dates: start: 20110606
  2. REMODULIN [Concomitant]
  3. ADCIRCA [Concomitant]
  4. COUMADIN                           /00014802/ [Concomitant]

REACTIONS (3)
  - Catheter site haemorrhage [Unknown]
  - Diarrhoea [Unknown]
  - Headache [Unknown]
